FAERS Safety Report 4865970-6 (Version None)
Quarter: 2005Q4

REPORT INFORMATION
  Report Type: 
  Country: None (occurrence: None)
  Receive Date: 20051226
  Receipt Date: 20051220
  Transmission Date: 20060501
  Serious: Yes (Death, Life-Threatening, Other)
  Sender: FDA-Public Use
  Company Number: PHBS2005CA18733

PATIENT
  Age: 15 Year
  Sex: Male

DRUGS (13)
  1. FLUDARABINE [Concomitant]
     Indication: BONE MARROW TRANSPLANT
     Dosage: 30 MG/M2/D
     Route: 042
  2. CYCLOPHOSPHAMIDE [Concomitant]
     Indication: BONE MARROW TRANSPLANT
     Dosage: 60 MG/KG/D
     Route: 042
  3. ATGAM [Concomitant]
     Indication: BONE MARROW TRANSPLANT
     Dosage: 40 MG/KG/D
  4. OCTREOTIDE [Suspect]
     Dosage: 3-20 UG/KG/D
     Route: 042
  5. MYCOPHENOLIC ACID [Suspect]
     Dosage: 500 MG, BID
     Route: 042
  6. IMMUNOGLOBULINS [Concomitant]
     Dosage: 0.5 G/KG, QW
  7. SULFAMETHOXAZOLE + TRIMETHOPRIM [Concomitant]
  8. FLUCONAZOLE [Concomitant]
     Dosage: 5 MG/KG/D
     Route: 048
  9. ACYCLOVIR [Concomitant]
     Dosage: 250 MG/M2, BID
     Route: 042
  10. METHOTREXATE [Suspect]
     Indication: BONE MARROW TRANSPLANT
     Dosage: 15 MG/M2-10 MG/M2/D
     Route: 042
  11. METHYLPREDNISOLONE [Suspect]
     Indication: BONE MARROW TRANSPLANT
     Dosage: 0.4 MG/KG, BID
  12. NEUPOGEN [Concomitant]
     Indication: BONE MARROW TRANSPLANT
     Dosage: 5 UG/KG/D
     Route: 058
  13. CYCLOSPORINE [Suspect]
     Indication: BONE MARROW TRANSPLANT
     Dosage: UNK, BID
     Route: 042

REACTIONS (23)
  - ABDOMINAL PAIN [None]
  - ABDOMINAL WALL ANOMALY [None]
  - ASCITES [None]
  - BLOOD BILIRUBIN INCREASED [None]
  - BRAIN HERNIATION [None]
  - BRAIN OEDEMA [None]
  - CAPILLARY DISORDER [None]
  - CARDIO-RESPIRATORY ARREST [None]
  - CEREBRAL HAEMORRHAGE [None]
  - DIARRHOEA [None]
  - DIARRHOEA HAEMORRHAGIC [None]
  - DRUG TOXICITY [None]
  - EPISTAXIS [None]
  - FIBRIN D DIMER INCREASED [None]
  - GASTRITIS [None]
  - GRAFT VERSUS HOST DISEASE [None]
  - HYPOTENSION [None]
  - MYDRIASIS [None]
  - OESOPHAGITIS [None]
  - RED BLOOD CELL SCHISTOCYTES PRESENT [None]
  - RESPIRATORY DISTRESS [None]
  - SEPTIC SHOCK [None]
  - STREPTOCOCCAL INFECTION [None]
